FAERS Safety Report 24862886 (Version 1)
Quarter: 2025Q1

REPORT INFORMATION
  Report Type: Spontaneous
  Country: ZA (occurrence: ZA)
  Receive Date: 20250120
  Receipt Date: 20250120
  Transmission Date: 20250409
  Serious: Yes (Hospitalization, Other)
  Sender: ALEXION PHARMACEUTICALS
  Company Number: ZA-AstraZeneca-CH-00787590A

PATIENT
  Age: 64 Year

DRUGS (7)
  1. DAPAGLIFLOZIN PROPANEDIOL [Suspect]
     Active Substance: DAPAGLIFLOZIN PROPANEDIOL
     Indication: Type 2 diabetes mellitus
  2. Spiractin [Concomitant]
     Indication: Hypertension
  3. Spiractin [Concomitant]
     Indication: Oedema
  4. Spiractin [Concomitant]
     Indication: Cardiac failure
  5. Spiractin [Concomitant]
     Indication: Hepatic cirrhosis
  6. Spiractin [Concomitant]
     Indication: Renal impairment
  7. METFORMIN HYDROCHLORIDE [Concomitant]
     Active Substance: METFORMIN HYDROCHLORIDE
     Indication: Type 2 diabetes mellitus

REACTIONS (1)
  - Myocardial infarction [Unknown]
